FAERS Safety Report 13653603 (Version 1)
Quarter: 2017Q2

REPORT INFORMATION
  Report Type: Spontaneous
  Country: US (occurrence: US)
  Receive Date: 20170614
  Receipt Date: 20170614
  Transmission Date: 20170830
  Serious: No
  Sender: FDA-Public Use
  Company Number: US-ROCHE-1307404

PATIENT
  Sex: Female

DRUGS (6)
  1. XELODA [Suspect]
     Active Substance: CAPECITABINE
     Indication: BONE CANCER
  2. ASPIRIN. [Concomitant]
     Active Substance: ASPIRIN
  3. XELODA [Suspect]
     Active Substance: CAPECITABINE
     Indication: BREAST CANCER
     Dosage: 3 IN THE MORNING, 2 IN THE EVENING FOR 14 DAYS ON AND 7 DAYS OFF
     Route: 065
     Dates: start: 20130731
  4. OXYCODONE [Concomitant]
     Active Substance: OXYCODONE
  5. ANASTROZOLE. [Concomitant]
     Active Substance: ANASTROZOLE
  6. XELODA [Suspect]
     Active Substance: CAPECITABINE
     Indication: METASTASES TO BONE MARROW

REACTIONS (1)
  - Diarrhoea [Unknown]
